FAERS Safety Report 7536117-2 (Version None)
Quarter: 2011Q2

REPORT INFORMATION
  Report Type: 
  Country: None (occurrence: None)
  Receive Date: 20110609
  Receipt Date: 20110607
  Transmission Date: 20111010
  Serious: Yes (Hospitalization)
  Sender: FDA-Public Use
  Company Number: CA-SANOFI-AVENTIS-2011SA004275

PATIENT
  Age: 78 Year
  Sex: Female

DRUGS (8)
  1. LYRICA [Concomitant]
     Route: 065
  2. VITAMIN D [Concomitant]
     Route: 065
  3. NADOLOL [Concomitant]
     Route: 065
  4. RISEDRONATE SODIUM [Concomitant]
     Route: 065
  5. INDAPAMIDE [Suspect]
     Indication: HYPERTENSION
     Route: 048
     Dates: end: 20100727
  6. CITALOPRAM HYDROBROMIDE [Interacting]
     Indication: DEPRESSION
     Dosage: ^1 DF, QD^.
     Route: 048
     Dates: start: 20100705, end: 20100727
  7. ATACAND [Concomitant]
     Route: 065
  8. CALCIUM CARBONATE [Concomitant]
     Route: 065

REACTIONS (6)
  - BLOOD OSMOLARITY DECREASED [None]
  - DISORIENTATION [None]
  - HYPONATRAEMIA [None]
  - DRUG INTERACTION [None]
  - NEUROLOGICAL SYMPTOM [None]
  - SPEECH DISORDER [None]
